FAERS Safety Report 15316922 (Version 1)
Quarter: 2018Q3

REPORT INFORMATION
  Report Type: Spontaneous
  Country: US (occurrence: US)
  Receive Date: 20180824
  Receipt Date: 20180824
  Transmission Date: 20181010
  Serious: No
  Sender: FDA-Public Use
  Company Number: US-PFIZER INC-2018338235

PATIENT
  Age: 55 Year
  Sex: Female
  Weight: 65.77 kg

DRUGS (11)
  1. LYRICA [Suspect]
     Active Substance: PREGABALIN
     Dosage: 300 MG, 1X/DAY (DOUBLING UP ON THE 150 MG CAPSULES)
  2. TIZANIDINE. [Concomitant]
     Active Substance: TIZANIDINE
     Indication: MUSCLE SPASMS
     Dosage: 2 MG TABLETS 1?2 TABLETS, AS NEEDED
     Route: 048
     Dates: start: 2017
  3. LORAZEPAM. [Concomitant]
     Active Substance: LORAZEPAM
     Indication: ANXIETY
     Dosage: 1 MG, 1X/DAY(1 MG TABLET ONE AT NIGHT)
     Route: 048
     Dates: start: 2015
  4. COMBIPATCH [Concomitant]
     Active Substance: ESTRADIOL\NORETHINDRONE ACETATE
     Indication: HOT FLUSH
     Dosage: PATCH, 2X/WEEK SWITCH EVERY 3?4 DAYS, [ESTRADIOL 140]/[NORETHISTERONE ACETATE 50]
     Dates: start: 2015
  5. LYRICA [Suspect]
     Active Substance: PREGABALIN
     Indication: PAIN
     Dosage: 300 MG, 1X/DAY (IN THE EVENING)
     Dates: end: 20180714
  6. NALTREXONE [Concomitant]
     Active Substance: NALTREXONE
     Indication: FIBROMYALGIA
     Dosage: 4.5 MG, 1X/DAY(LOW DOSE NALTREXONE)
     Route: 048
     Dates: start: 2017
  7. FIORINAL [Concomitant]
     Active Substance: ASPIRIN\BUTALBITAL\CAFFEINE
     Indication: MIGRAINE
     Dosage: 50/325, AS NEEDED
     Route: 048
  8. HUMIRA [Concomitant]
     Active Substance: ADALIMUMAB
     Indication: PSORIATIC ARTHROPATHY
     Dosage: 0.8 ML, 1 INJECTION EVERY 2 WEEKS
     Dates: start: 20160630
  9. AIMOVIG [Concomitant]
     Active Substance: ERENUMAB-AOOE
     Indication: MIGRAINE
     Dosage: AUTOINJECTABLE
     Dates: start: 20180630
  10. LYRICA [Suspect]
     Active Substance: PREGABALIN
     Indication: FIBROMYALGIA
     Dosage: 150 MG, 3X/DAY (150 MG CAPSULE, ONE AT MORNING, LUNCH, AND DINNER, SUPPOSED TO BE 6 HOURS APART)
     Route: 048
     Dates: start: 2016
  11. FLUOXETINE [Concomitant]
     Active Substance: FLUOXETINE HYDROCHLORIDE
     Indication: DEPRESSION
     Dosage: 40 MG, 1X/DAY
     Route: 048
     Dates: start: 2015

REACTIONS (9)
  - Night sweats [Not Recovered/Not Resolved]
  - Prescribed overdose [Unknown]
  - Diarrhoea [Recovered/Resolved]
  - Insomnia [Recovered/Resolved]
  - Intentional product misuse [Unknown]
  - Vomiting [Recovered/Resolved]
  - Nausea [Not Recovered/Not Resolved]
  - Drug withdrawal syndrome [Recovered/Resolved]
  - Product use issue [Unknown]

NARRATIVE: CASE EVENT DATE: 2014
